FAERS Safety Report 9168816 (Version 2)
Quarter: 2013Q1

REPORT INFORMATION
  Report Type: Spontaneous
  Country: FR (occurrence: None)
  Receive Date: 20130308
  Receipt Date: 20130319
  Transmission Date: 20140127
  Serious: Yes (Hospitalization)
  Sender: FDA-Public Use
  Company Number: ENT 2013-0044

PATIENT
  Sex: Female

DRUGS (6)
  1. COMTAN (ENTACAPONE) [Suspect]
     Indication: PARKINSON^S DISEASE
     Dosage: 800 MG (200 MG, 4 IN 1 D), ORAL
     Route: 048
     Dates: start: 2011, end: 20121214
  2. STALEVO (LEVODOPA, CARBIDOPA, ENTACAPONE) [Suspect]
     Indication: PARKINSON^S DISEASE
     Dosage: 100/25/200 MG (1 DOSAGE FORM, 3 IN  1 D), ORAL
     Route: 048
     Dates: start: 20121214, end: 20121231
  3. MODOPAR [Concomitant]
  4. SERESTA [Concomitant]
  5. DOLIPRANE [Concomitant]
  6. XARELTO [Concomitant]

REACTIONS (1)
  - Leukopenia [None]
